FAERS Safety Report 16872271 (Version 3)
Quarter: 2019Q4

REPORT INFORMATION
  Report Type: Report from Study
  Country: CO (occurrence: CO)
  Receive Date: 20191001
  Receipt Date: 20191120
  Transmission Date: 20200122
  Serious: Yes (Death, Hospitalization)
  Sender: FDA-Public Use
  Company Number: PHHY2019CO199394

PATIENT
  Age: 42 Year
  Sex: Female

DRUGS (4)
  1. KISQALI [Suspect]
     Active Substance: RIBOCICLIB
     Dosage: 400 MG, QD
     Route: 048
     Dates: start: 20190910
  2. FEMARA [Suspect]
     Active Substance: LETROZOLE
     Indication: BREAST CANCER METASTATIC
     Dosage: 2.5 MG, QD
     Route: 048
     Dates: start: 20190814
  3. FEMARA [Suspect]
     Active Substance: LETROZOLE
     Dosage: 2.5 MG, QD
     Route: 048
     Dates: start: 20190910
  4. KISQALI [Suspect]
     Active Substance: RIBOCICLIB
     Indication: BREAST CANCER METASTATIC
     Dosage: 600 MG, QD
     Route: 048
     Dates: start: 20190814

REACTIONS (10)
  - Death [Fatal]
  - Weight decreased [Unknown]
  - Peripheral swelling [Unknown]
  - Fluid retention [Unknown]
  - Stomatitis [Recovered/Resolved]
  - Pain [Unknown]
  - Drug intolerance [Unknown]
  - Feeding disorder [Unknown]
  - Back pain [Unknown]
  - Oral mucosa haematoma [Unknown]

NARRATIVE: CASE EVENT DATE: 20191028
